FAERS Safety Report 4578945-1 (Version None)
Quarter: 2005Q1

REPORT INFORMATION
  Report Type: 
  Country: None (occurrence: None)
  Receive Date: 20050121
  Receipt Date: 20040802
  Transmission Date: 20050727
  Serious: Yes (Hospitalization)
  Sender: FDA-Public Use
  Company Number: PHBS2004US10139

PATIENT
  Sex: Female

DRUGS (3)
  1. LIORESAL [Suspect]
     Indication: MUSCLE SPASTICITY
     Dosage: 600 UG/DAY, INTRATHECAL
     Route: 037
  2. CLONIDINE [Concomitant]
  3. DILAUDID [Concomitant]

REACTIONS (1)
  - MUSCLE SPASTICITY [None]
